FAERS Safety Report 9137672 (Version 1)
Quarter: 2013Q1

REPORT INFORMATION
  Report Type: Spontaneous
  Country: US (occurrence: US)
  Receive Date: 20130304
  Receipt Date: 20130304
  Transmission Date: 20140127
  Serious: Yes (Other)
  Sender: FDA-Public Use
  Company Number: US-PFIZER INC-2013071840

PATIENT
  Age: 18 Year
  Sex: Female

DRUGS (8)
  1. METHOTREXATE SODIUM [Suspect]
     Indication: OSTEOSARCOMA
     Dosage: 12 G/M2 OVER 4 H
     Route: 042
  2. METHOTREXATE SODIUM [Suspect]
     Indication: CHEMOTHERAPY
  3. LEUCOVORIN [Concomitant]
     Indication: OSTEOSARCOMA
     Dosage: 15 MG/ M2 EVERY 6 H BEGINNING AT 0 HOUR
  4. LEUCOVORIN [Concomitant]
     Indication: CHEMOTHERAPY
  5. DOXORUBICIN [Concomitant]
     Indication: OSTEOSARCOMA
     Dosage: UNK
  6. DOXORUBICIN [Concomitant]
     Indication: CHEMOTHERAPY
  7. CISPLATINUM [Concomitant]
     Indication: OSTEOSARCOMA
     Dosage: UNK
  8. CISPLATINUM [Concomitant]
     Indication: CHEMOTHERAPY

REACTIONS (1)
  - Nephropathy toxic [Recovering/Resolving]
